FAERS Safety Report 14254713 (Version 3)
Quarter: 2018Q1

REPORT INFORMATION
  Report Type: Spontaneous
  Country: IT (occurrence: IT)
  Receive Date: 20171206
  Receipt Date: 20180117
  Transmission Date: 20180508
  Serious: Yes (Hospitalization)
  Sender: FDA-Public Use
  Company Number: IT-009507513-1712ITA001945

PATIENT
  Age: 75 Year
  Sex: Female

DRUGS (9)
  1. TENORMIN [Concomitant]
     Active Substance: ATENOLOL
  2. TORVAST [Concomitant]
     Active Substance: ATORVASTATIN
  3. JANUVIA [Suspect]
     Active Substance: SITAGLIPTIN PHOSPHATE
     Indication: DIABETES MELLITUS
     Dosage: 100 MG, QD
     Route: 048
     Dates: start: 20171001, end: 20171105
  4. EUTIROX [Concomitant]
     Active Substance: LEVOTHYROXINE SODIUM
  5. CARDURA [Concomitant]
     Active Substance: DOXAZOSIN MESYLATE
  6. ZETIA [Concomitant]
     Active Substance: EZETIMIBE
     Route: 048
  7. QUARK [Concomitant]
     Active Substance: RAMIPRIL
  8. GLUCOBAY [Concomitant]
     Active Substance: ACARBOSE
  9. CAFFEINE (+) MAGNESIUM SALICYLATE [Concomitant]

REACTIONS (5)
  - Pallor [Recovered/Resolved with Sequelae]
  - Abdominal distension [Recovered/Resolved with Sequelae]
  - Hyperhidrosis [Recovered/Resolved with Sequelae]
  - Abdominal pain [Recovered/Resolved with Sequelae]
  - Blood pressure fluctuation [Recovered/Resolved with Sequelae]

NARRATIVE: CASE EVENT DATE: 20171105
